FAERS Safety Report 9515432 (Version 1)
Quarter: 2013Q1

REPORT INFORMATION
  Report Type: Spontaneous
  Country: US (occurrence: None)
  Receive Date: 20130305
  Receipt Date: 20130305
  Transmission Date: 20140127
  Serious: Yes (Other)
  Sender: FDA-Public Use
  Company Number: 163-21880-12114061

PATIENT
  Age: 70 Year
  Sex: Female
  Weight: 55.79 kg

DRUGS (8)
  1. REVLIMID [Suspect]
     Indication: PLASMA CELL MYELOMA
     Dosage: 25MG, 21 IN 21 D, PO
     Route: 048
     Dates: start: 20121009, end: 20121019
  2. VELCADE [Concomitant]
  3. HYDROCODONE/ACETAMINOPHEN (REMEDEINE) [Concomitant]
  4. ONDANSETRON HYDROCHLORIDE (ONDANSETRON HYDROCHORIDE) [Concomitant]
  5. DEXAMETHASONE (DEXAMETHASONE) [Concomitant]
  6. ASA (ACETYLSALICYLIC ACID) [Concomitant]
  7. ZOMETA (ZOLEDRONIC ACID) [Concomitant]
  8. WHOLE BLOOD [Concomitant]

REACTIONS (5)
  - Loss of consciousness [None]
  - Full blood count abnormal [None]
  - Eye infection [None]
  - Rash [None]
  - Body temperature increased [None]
